FAERS Safety Report 7321945-9 (Version None)
Quarter: 2011Q1

REPORT INFORMATION
  Report Type: 
  Country: None (occurrence: None)
  Receive Date: 20110228
  Receipt Date: 20110225
  Transmission Date: 20110831
  Serious: No
  Sender: FDA-Public Use
  Company Number: US-PFIZER INC-2011015153

PATIENT
  Age: 83 Year
  Sex: Female
  Weight: 56.689 kg

DRUGS (5)
  1. ADVIL LIQUI-GELS [Suspect]
     Indication: HEADACHE
     Dosage: 2 TABLETS
     Route: 048
     Dates: start: 20100101, end: 20100101
  2. ADVIL LIQUI-GELS [Suspect]
     Indication: ARTHRALGIA
  3. INDERAL [Concomitant]
     Indication: HYPERTENSION
  4. VERAPAMIL HYDROCHLORIDE [Concomitant]
     Indication: HYPERTENSION
  5. DICLOFENAC [Concomitant]
     Indication: ARTHRALGIA

REACTIONS (1)
  - BALANCE DISORDER [None]
